FAERS Safety Report 9140646 (Version 5)
Quarter: 2016Q3

REPORT INFORMATION
  Report Type: Spontaneous
  Country: US (occurrence: US)
  Receive Date: 20130305
  Receipt Date: 20160907
  Transmission Date: 20161109
  Serious: Yes (Life-Threatening, Other)
  Sender: FDA-Public Use
  Company Number: US-GLAXOSMITHKLINE-A1011459A

PATIENT
  Age: 29 Year
  Sex: Female

DRUGS (3)
  1. LAMICTAL [Suspect]
     Active Substance: LAMOTRIGINE
     Dosage: UNK
  2. LAMICTAL [Suspect]
     Active Substance: LAMOTRIGINE
     Indication: SEIZURE
     Dosage: 200 MG UNKNOWN DOSING
     Route: 065
     Dates: start: 20090127
  3. LAMOTRIGINE. [Suspect]
     Active Substance: LAMOTRIGINE
     Indication: SEIZURE
     Dosage: 200 MG, UNK
     Dates: start: 2015

REACTIONS (10)
  - Headache [Recovered/Resolved]
  - Hypersensitivity [Unknown]
  - Somnolence [Recovered/Resolved]
  - Rash [Unknown]
  - Loss of consciousness [Recovered/Resolved]
  - Aura [Recovered/Resolved]
  - Acne [Unknown]
  - Seizure [Recovered/Resolved]
  - Disorientation [Recovered/Resolved]
  - Drug dose omission [Recovered/Resolved]

NARRATIVE: CASE EVENT DATE: 20130203
